FAERS Safety Report 4533397-2 (Version None)
Quarter: 2004Q4

REPORT INFORMATION
  Report Type: 
  Country: None (occurrence: None)
  Receive Date: 20041210
  Receipt Date: 20041004
  Transmission Date: 20050328
  Serious: Yes (Other)
  Sender: FDA-Public Use
  Company Number: 2004-00598

PATIENT
  Sex: Female

DRUGS (1)
  1. VELCADE [Suspect]

REACTIONS (2)
  - ASTHENIA [None]
  - BLOOD GLUCOSE DECREASED [None]
